FAERS Safety Report 21607202 (Version 2)
Quarter: 2025Q4

REPORT INFORMATION
  Report Type: Spontaneous
  Country: AU (occurrence: AU)
  Receive Date: 20221117
  Receipt Date: 20251203
  Transmission Date: 20260117
  Serious: Yes (Other)
  Sender: PFIZER
  Company Number: AU-PFIZER INC-PV202200103265

PATIENT
  Age: 67 Year
  Sex: Male

DRUGS (3)
  1. SULFAMETHOXAZOLE\TRIMETHOPRIM [Suspect]
     Active Substance: SULFAMETHOXAZOLE\TRIMETHOPRIM
     Indication: Nocardiosis
     Dosage: UNK
  2. CIPROFLOXACIN [Concomitant]
     Active Substance: CIPROFLOXACIN
     Indication: Nocardiosis
     Dosage: UNK
     Route: 048
  3. LINEZOLID [Concomitant]
     Active Substance: LINEZOLID
     Indication: Nocardiosis
     Dosage: UNK

REACTIONS (3)
  - Drug intolerance [Recovered/Resolved]
  - Hyperkalaemia [Unknown]
  - Off label use [Unknown]
